FAERS Safety Report 8600098 (Version 2)
Quarter: 2012Q4

REPORT INFORMATION
  Report Type: 
  Country: US (occurrence: US)
  Receive Date: 20120605
  Receipt Date: 20121029
  Transmission Date: 20130627
  Serious: Yes (Other)
  Sender: FDA-Public Use
  Company Number: US-PFIZER INC-2012132676

PATIENT
  Age: 46 Year
  Sex: Female
  Weight: 77.1 kg

DRUGS (5)
  1. EFFEXOR XR [Suspect]
     Indication: DEPRESSION
     Dosage: 75 mg, daily
     Route: 048
     Dates: start: 200605
  2. EFFEXOR XR [Suspect]
     Indication: PANIC DISORDER
     Dosage: 300 mg, 1x/day (2 tabs 150 mg 1 time daily)
     Route: 048
  3. EFFEXOR XR [Suspect]
     Indication: DEPRESSION
  4. EFFEXOR XR [Suspect]
     Indication: ANXIETY
  5. EFFEXOR XR [Suspect]
     Indication: PANIC DISORDER

REACTIONS (3)
  - Bipolar disorder [Unknown]
  - Withdrawal syndrome [Unknown]
  - Feeling abnormal [Unknown]
